FAERS Safety Report 6691611-1 (Version None)
Quarter: 2010Q2

REPORT INFORMATION
  Report Type: 
  Country: None (occurrence: None)
  Receive Date: 20100422
  Receipt Date: 20100407
  Transmission Date: 20101027
  Serious: Yes (Hospitalization)
  Sender: FDA-Public Use
  Company Number: PHHY2010JP21860

PATIENT
  Age: 34 Year
  Sex: Female

DRUGS (11)
  1. TEGRETOL [Suspect]
     Dosage: 800 MG, DAILY
  2. RISPERDAL [Concomitant]
     Dosage: 07 MG, UNK
  3. WINTERMIN [Concomitant]
     Dosage: 120 MG, UNK
  4. SOFMIN AMEL [Concomitant]
     Dosage: 120 MG, UNK
  5. SOFMIN AMEL [Concomitant]
     Dosage: 175 MG, UNK
  6. AKINETON [Concomitant]
     Dosage: 6 MG, UNK
  7. SERENACE [Concomitant]
     Dosage: 15 MG, UNK
  8. SERENACE [Concomitant]
     Dosage: 14 MG, UNK
  9. BLONANSERIN [Concomitant]
     Dosage: 20 MG, UNK
  10. BLONANSERIN [Concomitant]
     Dosage: 24 MG, UNK
  11. DEPAKENE [Concomitant]
     Dosage: 1.2 G, UNK

REACTIONS (3)
  - SCHIZOPHRENIA [None]
  - THERAPEUTIC RESPONSE DECREASED [None]
  - TRI-IODOTHYRONINE DECREASED [None]
